FAERS Safety Report 4931363-6 (Version None)
Quarter: 2006Q1

REPORT INFORMATION
  Report Type: 
  Country: None (occurrence: None)
  Receive Date: 20060228
  Receipt Date: 20060214
  Transmission Date: 20060701
  Serious: Yes (Hospitalization)
  Sender: FDA-Public Use
  Company Number: CERZ-11136

PATIENT
  Age: 69 Year
  Sex: Female
  Weight: 90 kg

DRUGS (1)
  1. CEREZYME [Suspect]
     Indication: GAUCHER'S DISEASE
     Dosage: 5400 UNITS Q2WKS IV
     Route: 042
     Dates: start: 20010724, end: 20060125

REACTIONS (6)
  - ARRHYTHMIA [None]
  - BREAST CANCER RECURRENT [None]
  - PANCYTOPENIA [None]
  - PERICARDIAL EFFUSION [None]
  - PLEURAL EFFUSION [None]
  - TACHYCARDIA [None]
